FAERS Safety Report 5874889-3 (Version None)
Quarter: 2008Q3

REPORT INFORMATION
  Report Type: 
  Country: None (occurrence: None)
  Receive Date: 20080904
  Receipt Date: 20080826
  Transmission Date: 20090109
  Serious: Yes (Hospitalization)
  Sender: FDA-Public Use
  Company Number: TCI2008A03842

PATIENT
  Age: 52 Year
  Sex: Female

DRUGS (1)
  1. LANSAP 400 (LANSOPRAZOLE, CLARITHROMYCIN, AMOXICILLIN) (PREPARATION FO [Suspect]
     Indication: HELICOBACTER INFECTION
     Dosage: CARD (0.5 CARD, 2 IN 1 D)
     Route: 048
     Dates: start: 20080711, end: 20080718

REACTIONS (1)
  - INTESTINAL ISCHAEMIA [None]
